FAERS Safety Report 7915288-X (Version None)
Quarter: 2011Q4

REPORT INFORMATION
  Report Type: 
  Country: None (occurrence: None)
  Receive Date: 20111115
  Receipt Date: 20111109
  Transmission Date: 20120403
  Serious: Yes (Other)
  Sender: FDA-Public Use
  Company Number: CHPA2011US14146

PATIENT
  Age: 55 Year
  Sex: Male

DRUGS (2)
  1. LAMISIL [Suspect]
     Indication: ONYCHOMYCOSIS
     Dosage: UNK, AS NEEDED
     Route: 061
  2. LAMISIL                            /00992601/ [Concomitant]
     Indication: ONYCHOMYCOSIS
     Dosage: 1 DF, QD
     Route: 048

REACTIONS (3)
  - DIABETES MELLITUS [None]
  - EXPIRED DRUG ADMINISTERED [None]
  - OFF LABEL USE [None]
